FAERS Safety Report 21383965 (Version 1)
Quarter: 2022Q3

REPORT INFORMATION
  Report Type: Spontaneous
  Country: GB (occurrence: GB)
  Receive Date: 20220928
  Receipt Date: 20220928
  Transmission Date: 20221026
  Serious: Yes (Other)
  Sender: FDA-Public Use
  Company Number: GB-AUROBINDO-AUR-APL-2022-038466

PATIENT
  Age: 57 Year
  Sex: Female
  Weight: 92 kg

DRUGS (9)
  1. METRONIDAZOLE [Suspect]
     Active Substance: METRONIDAZOLE
     Indication: Dental care
     Dosage: 400 MILLIGRAM, 3 TIMES A DAY
     Route: 065
     Dates: start: 20220818
  2. MORPHINE SULFATE [Suspect]
     Active Substance: MORPHINE SULFATE
     Indication: Back pain
     Dosage: 10 MILLIGRAM, ONCE A DAY
     Route: 065
     Dates: start: 202002
  3. Menopace [Concomitant]
     Indication: Menopause
     Dosage: 1 DOSAGE FORM, ONCE A DAY
     Route: 065
  4. DILTIAZEM HYDROCHLORIDE [Concomitant]
     Active Substance: DILTIAZEM HYDROCHLORIDE
     Indication: Raynaud^s phenomenon
     Dosage: 60 MILLIGRAM, ONCE A DAY TAKEN FOR 3 YEARS
     Route: 065
  5. SERETIDE [Concomitant]
     Active Substance: FLUTICASONE PROPIONATE\SALMETEROL XINAFOATE
     Indication: Asthma
     Dosage: 1 DOSAGE FORM, TWO TIMES A DAY(1 PUFF MORNING AND NIGHT. TAKEN FOR 20+YEARS)
     Route: 065
  6. BRICANYL [Concomitant]
     Active Substance: TERBUTALINE SULFATE
     Indication: Asthma
     Dosage: TAKEN FOR 20+ YEARS
     Route: 065
  7. EVENING PRIMROSE OIL\HERBALS [Concomitant]
     Active Substance: EVENING PRIMROSE OIL\HERBALS
     Indication: Menopause
     Dosage: 1000 MILLIGRAM, ONCE A DAY(TAKEN ALSO FOR SKIN)
     Route: 065
  8. AMITRIPTYLINE [Concomitant]
     Active Substance: AMITRIPTYLINE
     Indication: Pain
     Dosage: 10 MILLIGRAM, FOUR TIMES/DAY(AT NIGHT. TAKEN FOR 10+ YEARS)
     Route: 065
  9. ALVERINE [Concomitant]
     Active Substance: ALVERINE
     Indication: Irritable bowel syndrome
     Dosage: 120 MILLIGRAM, 3 TIMES A DAY(TAKEN FOR 20+YEARS)
     Route: 065

REACTIONS (4)
  - Arthralgia [Recovering/Resolving]
  - Confusional state [Recovering/Resolving]
  - Headache [Recovering/Resolving]
  - Restlessness [Recovering/Resolving]
